FAERS Safety Report 4464188-9 (Version None)
Quarter: 2004Q4

REPORT INFORMATION
  Report Type: 
  Country: None (occurrence: None)
  Receive Date: 20041001
  Receipt Date: 20040914
  Transmission Date: 20050328
  Serious: Yes (Other)
  Sender: FDA-Public Use
  Company Number: US-GLAXOSMITHKLINE-A0525720A

PATIENT
  Age: 36 Year
  Sex: Female

DRUGS (1)
  1. WELLBUTRIN XL [Suspect]
     Indication: DEPRESSION
     Dosage: 300MG PER DAY
     Route: 048
     Dates: start: 20040906, end: 20040909

REACTIONS (6)
  - CONVULSION [None]
  - GRIP STRENGTH DECREASED [None]
  - MOUTH INJURY [None]
  - MUSCLE TWITCHING [None]
  - TREMOR [None]
  - VOMITING [None]
